FAERS Safety Report 4385507-8 (Version None)
Quarter: 2004Q2

REPORT INFORMATION
  Report Type: 
  Country: None (occurrence: None)
  Receive Date: 20040625
  Receipt Date: 20040625
  Transmission Date: 20050107
  Serious: Yes (Hospitalization)
  Sender: FDA-Public Use
  Company Number: None

PATIENT

DRUGS (2)
  1. ATENOLOL [Suspect]
     Dosage: 75 MG PO QD
     Route: 048
  2. ISOSORBIDE DINITRATE [Suspect]
     Dosage: 20 MG PO Q6 H
     Route: 048

REACTIONS (2)
  - HYPOTENSION [None]
  - SYNCOPE [None]
